FAERS Safety Report 25883010 (Version 1)
Quarter: 2025Q4

REPORT INFORMATION
  Report Type: Spontaneous
  Country: US (occurrence: US)
  Receive Date: 20251006
  Receipt Date: 20251006
  Transmission Date: 20260117
  Serious: Yes (Other)
  Sender: Kenvue
  Company Number: US-KENVUE-20251000227

PATIENT

DRUGS (1)
  1. TYLENOL PRECISE PAIN RELIEVING LIDOCAINE 4% [Suspect]
     Active Substance: LIDOCAINE
     Indication: Product used for unknown indication
     Route: 062

REACTIONS (1)
  - Autism spectrum disorder [Unknown]
